FAERS Safety Report 8921163 (Version 1)
Quarter: 2012Q4

REPORT INFORMATION
  Report Type: 
  Country: IT (occurrence: IT)
  Receive Date: 20121123
  Receipt Date: 20121123
  Transmission Date: 20130627
  Serious: Yes (Other)
  Sender: FDA-Public Use
  Company Number: IT-009507513-1211ITA008855

PATIENT
  Age: 57 Year
  Sex: Female

DRUGS (7)
  1. PEGINTRON [Suspect]
     Indication: CHRONIC HEPATITIS C
     Dosage: 100 Microgram, qw
     Route: 058
     Dates: start: 20120501
  2. RIBAVIRIN [Suspect]
     Dosage: 800 mg, qd
     Route: 048
     Dates: start: 20120501
  3. RIBAVIRIN [Suspect]
     Dosage: 600 mg, qd
     Route: 048
     Dates: start: 2012
  4. VICTRELIS [Suspect]
     Indication: CHRONIC HEPATITIS C
     Dosage: 2400 mg, qd
     Route: 048
     Dates: start: 20120529
  5. DIETARY SUPPLEMENT (UNSPECIFIED) [Concomitant]
     Dosage: 1 DF, qd
  6. FOLIC ACID [Concomitant]
     Dosage: 2 DF, UNK
  7. ANTRA (OMEPRAZOLE) [Concomitant]
     Dosage: 20 mg, UNK

REACTIONS (11)
  - Loss of consciousness [Recovered/Resolved]
  - Syncope [Recovered/Resolved]
  - Vomiting [Recovered/Resolved]
  - Haemoglobin decreased [Recovering/Resolving]
  - Neutrophil count decreased [Recovering/Resolving]
  - Phlebitis [Recovering/Resolving]
  - Oedema peripheral [Unknown]
  - Diarrhoea [Recovering/Resolving]
  - Abdominal pain [Recovering/Resolving]
  - Anaemia [Unknown]
  - Leukopenia [Unknown]
